FAERS Safety Report 5248258-3 (Version None)
Quarter: 2007Q1

REPORT INFORMATION
  Report Type: 
  Country: None (occurrence: None)
  Receive Date: 20070227
  Receipt Date: 20061002
  Transmission Date: 20070707
  Serious: No
  Sender: FDA-Public Use
  Company Number: US-BRISTOL-MYERS SQUIBB COMPANY-13527577

PATIENT
  Age: 70 Year
  Sex: Female
  Weight: 88 kg

DRUGS (5)
  1. GLUCOPHAGE [Suspect]
     Indication: DIABETES MELLITUS MANAGEMENT
     Route: 048
  2. GLIPIZIDE [Concomitant]
  3. ACTOS [Concomitant]
  4. PRINIVIL [Concomitant]
  5. VYTORIN [Concomitant]

REACTIONS (2)
  - DIARRHOEA [None]
  - NAUSEA [None]
